FAERS Safety Report 24623707 (Version 2)
Quarter: 2024Q4

REPORT INFORMATION
  Report Type: Report from Study
  Country: US (occurrence: US)
  Receive Date: 20241115
  Receipt Date: 20241204
  Transmission Date: 20250115
  Serious: Yes (Death, Other)
  Sender: TAKEDA
  Company Number: US-TAKEDA-2024TUS104415

PATIENT
  Sex: Male

DRUGS (3)
  1. FRUQUINTINIB [Suspect]
     Active Substance: FRUQUINTINIB
     Indication: Colon cancer
     Dosage: 3 MILLIGRAM
  2. FRUQUINTINIB [Suspect]
     Active Substance: FRUQUINTINIB
     Dosage: 3 MILLIGRAM
  3. XPOVIO [Concomitant]
     Active Substance: SELINEXOR
     Dosage: 40 MILLIGRAM, QD

REACTIONS (2)
  - Death [Fatal]
  - Platelet count decreased [Recovering/Resolving]
